FAERS Safety Report 20534884 (Version 3)
Quarter: 2022Q2

REPORT INFORMATION
  Report Type: Report from Study
  Country: CA (occurrence: CA)
  Receive Date: 20220302
  Receipt Date: 20220404
  Transmission Date: 20220720
  Serious: Yes (Hospitalization, Other)
  Sender: FDA-Public Use
  Company Number: CA-JNJFOC-20220115019

PATIENT
  Sex: Female

DRUGS (6)
  1. TREMFYA [Suspect]
     Active Substance: GUSELKUMAB
     Indication: Product used for unknown indication
     Route: 065
     Dates: start: 202103
  2. TREMFYA [Suspect]
     Active Substance: GUSELKUMAB
  3. USTEKINUMAB [Concomitant]
     Active Substance: USTEKINUMAB
     Route: 065
     Dates: start: 201304, end: 2013
  4. GOLIMUMAB [Concomitant]
     Active Substance: GOLIMUMAB
     Route: 065
     Dates: start: 201907, end: 201910
  5. ETANERCEPT [Concomitant]
     Active Substance: ETANERCEPT
     Route: 065
     Dates: start: 201208, end: 201211
  6. SECUKINUMAB [Concomitant]
     Active Substance: SECUKINUMAB
     Route: 065
     Dates: start: 201704, end: 201801

REACTIONS (1)
  - Spinal decompression [Recovered/Resolved]

NARRATIVE: CASE EVENT DATE: 20210822
